FAERS Safety Report 6121789-X (Version None)
Quarter: 2009Q1

REPORT INFORMATION
  Report Type: 
  Country: None (occurrence: None)
  Receive Date: 20090317
  Receipt Date: 20090312
  Transmission Date: 20090719
  Serious: Yes (Other)
  Sender: FDA-Public Use
  Company Number: DE-B.I. PHARMACEUTICALS,INC./RIDGEFIELD-2009-DE-01127DE

PATIENT
  Sex: Male
  Weight: 104 kg

DRUGS (4)
  1. AGGRENOX [Suspect]
  2. ASPIRIN [Concomitant]
     Indication: CEREBROVASCULAR ACCIDENT
     Dosage: 200MG
     Route: 048
  3. LEVITRA 20 [Concomitant]
     Dosage: .5ANZ
  4. GINKGO [Concomitant]

REACTIONS (2)
  - ATRIAL FIBRILLATION [None]
  - CEREBROVASCULAR ACCIDENT [None]
